FAERS Safety Report 4436604-X (Version None)
Quarter: 2004Q3

REPORT INFORMATION
  Report Type: 
  Country: None (occurrence: None)
  Receive Date: 20040830
  Receipt Date: 20040713
  Transmission Date: 20050211
  Serious: No
  Sender: FDA-Public Use
  Company Number: US-BRISTOL-MYERS SQUIBB COMPANY-12640371

PATIENT
  Sex: Male

DRUGS (1)
  1. ABILIFY [Suspect]
     Indication: DRUG ABUSER
     Dosage: STARTED @ 5 MG/DAY; INCREASED TO 10 MG/DAY; INCREASED TO 15 MG/DAY; THEN D/C
     Route: 048

REACTIONS (2)
  - AKATHISIA [None]
  - PARAESTHESIA [None]
